FAERS Safety Report 7742744-X (Version None)
Quarter: 2011Q3

REPORT INFORMATION
  Report Type: 
  Country: None (occurrence: None)
  Receive Date: 20110912
  Receipt Date: 20110901
  Transmission Date: 20111222
  Serious: Yes (Other)
  Sender: FDA-Public Use
  Company Number: CA-JNJFOC-20110901980

PATIENT
  Sex: Male
  Weight: 81 kg

DRUGS (4)
  1. REMICADE [Suspect]
     Indication: CROHN'S DISEASE
     Dosage: DOSE WAS CHANGED BUT THE NEW DOSE WAS UNKNOWN
     Route: 042
  2. PANTOPRAZOLE SODIUM [Concomitant]
     Route: 048
  3. REMICADE [Suspect]
     Dosage: FREQUENCY 4-6 WEEKS
     Route: 042
     Dates: start: 20041001
  4. IMURAN [Concomitant]

REACTIONS (1)
  - INTESTINAL STENOSIS [None]
